FAERS Safety Report 11594401 (Version 2)
Quarter: 2015Q4

REPORT INFORMATION
  Report Type: Spontaneous
  Country: US (occurrence: US)
  Receive Date: 20151005
  Receipt Date: 20151117
  Transmission Date: 20160304
  Serious: No
  Sender: FDA-Public Use
  Company Number: US-PFIZER INC-2015323941

PATIENT
  Age: 73 Year
  Sex: Male

DRUGS (3)
  1. NEURONTIN [Suspect]
     Active Substance: GABAPENTIN
     Indication: BURNING SENSATION
     Dosage: UNK
     Dates: start: 201506
  2. NEURONTIN [Suspect]
     Active Substance: GABAPENTIN
     Indication: PAIN IN EXTREMITY
     Dosage: INCREASED
     Dates: start: 201507
  3. NEURONTIN [Suspect]
     Active Substance: GABAPENTIN
     Dosage: 500 MG, 3X/DAY
     Dates: start: 201508, end: 20150909

REACTIONS (1)
  - Drug ineffective for unapproved indication [Unknown]
